FAERS Safety Report 11071542 (Version 1)
Quarter: 2015Q2

REPORT INFORMATION
  Report Type: Spontaneous
  Country: US (occurrence: US)
  Receive Date: 20150428
  Receipt Date: 20150428
  Transmission Date: 20150821
  Serious: Yes (Hospitalization, Other)
  Sender: FDA-Public Use
  Company Number: US-ELI_LILLY_AND_COMPANY-US201504005993

PATIENT
  Sex: Female

DRUGS (2)
  1. HUMALOG [Suspect]
     Active Substance: INSULIN LISPRO
     Indication: TYPE 2 DIABETES MELLITUS
     Dosage: 15 U, EACH EVENING
     Route: 065
     Dates: start: 201302
  2. LANTUS [Concomitant]
     Active Substance: INSULIN GLARGINE
     Dosage: 46 U, EACH EVENING

REACTIONS (9)
  - Tendon rupture [Unknown]
  - Neuropathy peripheral [Not Recovered/Not Resolved]
  - Nephrolithiasis [Unknown]
  - Gait disturbance [Not Recovered/Not Resolved]
  - Spinal column stenosis [Unknown]
  - Fall [Unknown]
  - Sciatica [Unknown]
  - Arthralgia [Unknown]
  - Malaise [Unknown]

NARRATIVE: CASE EVENT DATE: 201302
